FAERS Safety Report 5310632-4 (Version None)
Quarter: 2007Q1

REPORT INFORMATION
  Report Type: 
  Country: None (occurrence: None)
  Receive Date: 20070201
  Receipt Date: 20061101
  Transmission Date: 20070707
  Serious: No
  Sender: FDA-Public Use
  Company Number: 258234

PATIENT
  Age: 62 Year
  Sex: Male
  Weight: 88.4 kg

DRUGS (4)
  1. LEVEMIR [Suspect]
     Indication: INSULIN-REQUIRING TYPE II DIABETES MELLITUS
     Dosage: 50 IU, QD, SUBCUTANEOUS
     Route: 058
     Dates: start: 20060901
  2. HUMALOG /01293501/(INSULINLISPRO) [Concomitant]
  3. ATACAND /01349502/ (CANDESARTAN CILEXETIL) [Concomitant]
  4. MONOPRIL [Concomitant]

REACTIONS (2)
  - NERVOUSNESS [None]
  - RESTLESSNESS [None]
